FAERS Safety Report 6928765-5 (Version None)
Quarter: 2010Q3

REPORT INFORMATION
  Report Type: 
  Country: None (occurrence: None)
  Receive Date: 20100817
  Receipt Date: 20100811
  Transmission Date: 20110219
  Serious: Yes (Hospitalization)
  Sender: FDA-Public Use
  Company Number: AU-BRISTOL-MYERS SQUIBB COMPANY-15236185

PATIENT
  Age: 63 Year
  Sex: Female

DRUGS (14)
  1. ORENCIA [Suspect]
     Indication: RHEUMATOID ARTHRITIS
     Dosage: LAST INFUSION:17JUL10
     Route: 042
     Dates: start: 20090930
  2. METHOTREXATE [Suspect]
  3. FOLIC ACID [Concomitant]
  4. RISPERIDONE [Concomitant]
  5. MS CONTIN [Concomitant]
     Dosage: 30MG IN THE MORNING
  6. EDRONAX [Concomitant]
  7. METRYL [Concomitant]
     Dosage: 1DF=0.25 UNITS NOT SPECIFIED 1 TABLET TWICE A DAY
  8. NEXIUM [Concomitant]
  9. SIMVASTATIN [Concomitant]
     Dosage: 1 TABLET PER NIGHT
  10. ACTONEL WITH CALCIUM (COPACKAGED) [Concomitant]
  11. CALCIUM [Concomitant]
     Dosage: 1DF=12550 UNITS NOT SPECIFIED
  12. ENDONE [Concomitant]
     Dosage: 1 TABLET TWICE A DAY
  13. MAXOLON [Concomitant]
     Dosage: 1 UP TO 4 TIMES A DAY
  14. THIAMINE HCL [Concomitant]

REACTIONS (2)
  - PANCREATITIS [None]
  - URINARY TRACT INFECTION [None]
